FAERS Safety Report 9166706 (Version 2)
Quarter: 2013Q2

REPORT INFORMATION
  Report Type: Spontaneous
  Country: PL (occurrence: PL)
  Receive Date: 20130316
  Receipt Date: 20130527
  Transmission Date: 20140414
  Serious: Yes (Hospitalization)
  Sender: FDA-Public Use
  Company Number: PL-AMGEN-POLSP2013016057

PATIENT
  Age: 78 Year
  Sex: Female
  Weight: 59 kg

DRUGS (8)
  1. PROLIA [Suspect]
     Indication: OSTEOPOROSIS
     Dosage: 60 MG, Q6MO
     Route: 058
     Dates: start: 20130215, end: 20130215
  2. BISOCARD [Concomitant]
     Dosage: 5 MG, QD
     Route: 048
  3. AMIODARONE [Concomitant]
     Dosage: 200 MG, QD
     Route: 048
  4. RENAGEL                            /01459901/ [Concomitant]
  5. CALCIUM CARBONICUM KOMPLEX HANOSAN [Concomitant]
  6. EUTHYROX [Concomitant]
     Dosage: 100 MG, QD
  7. ALFADIOL [Concomitant]
     Dosage: 0.25 MG, QD
     Route: 048
  8. VITAMIN D                          /00107901/ [Concomitant]

REACTIONS (4)
  - Blood parathyroid hormone increased [Not Recovered/Not Resolved]
  - Diarrhoea [Recovering/Resolving]
  - Hypocalcaemia [Recovered/Resolved]
  - Tetany [Unknown]
